FAERS Safety Report 7888884-6 (Version None)
Quarter: 2011Q4

REPORT INFORMATION
  Report Type: 
  Country: None (occurrence: None)
  Receive Date: 20111101
  Receipt Date: 20111013
  Transmission Date: 20120403
  Serious: Yes (Other)
  Sender: FDA-Public Use
  Company Number: ADR-2011-11397

PATIENT
  Sex: Female

DRUGS (4)
  1. FENTANYL [Concomitant]
  2. CLONIDINE [Concomitant]
  3. BACLOFEN [Suspect]
     Indication: MUSCLE SPASTICITY
  4. MARCAINE HCL [Concomitant]

REACTIONS (2)
  - WOUND [None]
  - DEVICE MALFUNCTION [None]
